FAERS Safety Report 8188652-4 (Version None)
Quarter: 2012Q1

REPORT INFORMATION
  Report Type: 
  Country: None (occurrence: None)
  Receive Date: 20120306
  Receipt Date: 20120227
  Transmission Date: 20120608
  Serious: Yes (Other)
  Sender: FDA-Public Use
  Company Number: US-JNJFOC-20120200405

PATIENT
  Sex: Female
  Weight: 65.77 kg

DRUGS (8)
  1. MORPHINE [Concomitant]
     Indication: PAIN
     Route: 048
  2. REMICADE [Suspect]
     Indication: OSTEOARTHRITIS
     Route: 042
     Dates: end: 20110101
  3. REMICADE [Suspect]
     Route: 042
     Dates: start: 20091001
  4. REMICADE [Suspect]
     Route: 042
     Dates: end: 20110101
  5. METHOTREXATE [Suspect]
     Indication: OSTEOARTHRITIS
     Route: 048
     Dates: start: 20090101
  6. REMICADE [Suspect]
     Indication: PSORIATIC ARTHROPATHY
     Route: 042
     Dates: start: 20091001
  7. METHOTREXATE [Suspect]
     Indication: PSORIATIC ARTHROPATHY
     Route: 048
     Dates: start: 20090101
  8. FOLIC ACID [Suspect]
     Indication: NUTRITIONAL SUPPORT
     Route: 048
     Dates: start: 20090101

REACTIONS (5)
  - IRRITABLE BOWEL SYNDROME [None]
  - HYPERSENSITIVITY [None]
  - ADVERSE DRUG REACTION [None]
  - VITAMIN D DECREASED [None]
  - SURGERY [None]
